FAERS Safety Report 8236717-0 (Version None)
Quarter: 2012Q1

REPORT INFORMATION
  Report Type: 
  Country: None (occurrence: None)
  Receive Date: 20120323
  Receipt Date: 20090911
  Transmission Date: 20120608
  Serious: Yes (Hospitalization)
  Sender: FDA-Public Use
  Company Number: RU-007859

PATIENT
  Age: 68 Year
  Sex: Male

DRUGS (5)
  1. ASCORBIC ACID [Concomitant]
  2. BISOPROLOL FUMARATE [Concomitant]
  3. (ENALAPRIL) [Concomitant]
  4. (OFATUMUMAB) [Suspect]
     Dosage: INJECTION (INTRAVENOUS (NOT OTHERWISE SPECIFIED)
     Route: 042
     Dates: start: 20090422
  5. (CHLORAMBUCIL) [Suspect]
     Indication: CHRONIC LYMPHOCYTIC LEUKAEMIA
     Dosage: ORAL
     Route: 048
     Dates: start: 20090422

REACTIONS (4)
  - PNEUMONIA [None]
  - CHRONIC LYMPHOCYTIC LEUKAEMIA [None]
  - NEOPLASM PROGRESSION [None]
  - LYMPHADENOPATHY MEDIASTINAL [None]
